FAERS Safety Report 4856745-2 (Version None)
Quarter: 2005Q4

REPORT INFORMATION
  Report Type: 
  Country: None (occurrence: None)
  Receive Date: 20051219
  Receipt Date: 20050119
  Transmission Date: 20060501
  Serious: No
  Sender: FDA-Public Use
  Company Number: US-GLAXOSMITHKLINE-A0541236A

PATIENT
  Age: 67 Year

DRUGS (2)
  1. NICODERM CQ [Suspect]
     Dates: start: 20041229, end: 20050113
  2. NICODERM CQ [Suspect]
     Dates: start: 20050114, end: 20050117

REACTIONS (7)
  - APPLICATION SITE DISCHARGE [None]
  - APPLICATION SITE ERYTHEMA [None]
  - APPLICATION SITE PARAESTHESIA [None]
  - APPLICATION SITE PRURITUS [None]
  - APPLICATION SITE SWELLING [None]
  - APPLICATION SITE URTICARIA [None]
  - ARTHRALGIA [None]
